FAERS Safety Report 9692236 (Version 1)
Quarter: 2013Q4

REPORT INFORMATION
  Report Type: Report from Study
  Country: IN (occurrence: IN)
  Receive Date: 20131118
  Receipt Date: 20131118
  Transmission Date: 20140711
  Serious: Yes (Death)
  Sender: FDA-Public Use
  Company Number: IN-ROCHE-1303435

PATIENT
  Age: 45 Year
  Sex: Male
  Weight: 66 kg

DRUGS (2)
  1. PEG-INTERFERON ALFA 2A [Suspect]
     Indication: HEPATITIS C
     Dosage: THERAPY STOPPED - 8 WEEKS
     Route: 058
     Dates: start: 20120425
  2. RIBAVIRIN [Suspect]
     Indication: HEPATITIS C
     Dosage: THERPAY STOPPED - 8 WEEKS
     Route: 048
     Dates: start: 20120425

REACTIONS (1)
  - Cardiac arrest [Fatal]
